FAERS Safety Report 23360458 (Version 1)
Quarter: 2024Q1

REPORT INFORMATION
  Report Type: Report from Study
  Country: US (occurrence: US)
  Receive Date: 20240103
  Receipt Date: 20240103
  Transmission Date: 20240410
  Serious: Yes (Other)
  Sender: FDA-Public Use
  Company Number: US-GILEAD-2024-0656953

PATIENT
  Age: 27 Year
  Sex: Female
  Weight: 66.2 kg

DRUGS (22)
  1. AMBRISENTAN [Suspect]
     Active Substance: AMBRISENTAN
     Indication: Product used for unknown indication
     Dosage: 10 MG, QD
     Route: 065
     Dates: start: 202312
  2. AMBRISENTAN [Suspect]
     Active Substance: AMBRISENTAN
     Dosage: 5 MG, QD (DOSE REDUCED)
     Route: 065
     Dates: start: 202312
  3. REMODULIN [Suspect]
     Active Substance: TREPROSTINIL
     Indication: Pulmonary arterial hypertension
     Dosage: UNK, (1.0 MG/ML)
     Route: 041
     Dates: start: 20231120
  4. REMODULIN [Suspect]
     Active Substance: TREPROSTINIL
     Dosage: 0.006 UG/KG
     Route: 041
     Dates: start: 202311
  5. ADEMPAS [Suspect]
     Active Substance: RIOCIGUAT
     Indication: Pulmonary arterial hypertension
     Dosage: UNK
     Route: 065
     Dates: start: 20231130
  6. ADEMPAS [Suspect]
     Active Substance: RIOCIGUAT
     Dosage: 1 MG
     Route: 065
     Dates: start: 2023, end: 2023
  7. ADEMPAS [Suspect]
     Active Substance: RIOCIGUAT
     Dosage: 2 MG (DOSE INCREASED)
     Route: 065
     Dates: start: 2023
  8. ADEMPAS [Suspect]
     Active Substance: RIOCIGUAT
     Dosage: 0.5 MG (DOSE DECREASED)
     Route: 065
     Dates: start: 2023
  9. FAMOTIDINE [Concomitant]
     Active Substance: FAMOTIDINE
  10. SODIUM CHLORIDE [Concomitant]
     Active Substance: SODIUM CHLORIDE
  11. WARFARIN SODIUM [Concomitant]
     Active Substance: WARFARIN SODIUM
  12. PROTONIX [Concomitant]
     Active Substance: PANTOPRAZOLE SODIUM
  13. BISACODYL [Concomitant]
     Active Substance: BISACODYL
  14. PROCHLORPERAZINE MALEATE [Concomitant]
     Active Substance: PROCHLORPERAZINE MALEATE
  15. MEDROXYPROGESTERONE ACETATE [Concomitant]
     Active Substance: MEDROXYPROGESTERONE ACETATE
  16. OXYGEN [Concomitant]
     Active Substance: OXYGEN
  17. ACETAMINOPHEN [Concomitant]
     Active Substance: ACETAMINOPHEN
  18. ENOXAPARIN SODIUM [Concomitant]
     Active Substance: ENOXAPARIN SODIUM
  19. FUROSEMIDE [Concomitant]
     Active Substance: FUROSEMIDE
  20. POLYETHYLENE GLYCOLS [Concomitant]
     Active Substance: POLYETHYLENE GLYCOLS
  21. LOPERAMIDE [Concomitant]
     Active Substance: LOPERAMIDE
  22. SODIUM CHLORIDE [Concomitant]
     Active Substance: SODIUM CHLORIDE

REACTIONS (24)
  - Haematemesis [Recovered/Resolved]
  - Pulmonary embolism [Unknown]
  - Flushing [Unknown]
  - Constipation [Unknown]
  - Nausea [Unknown]
  - Headache [Unknown]
  - Dyspepsia [Unknown]
  - Haemoptysis [Unknown]
  - Fall [Recovered/Resolved]
  - Injury [Unknown]
  - Musculoskeletal chest pain [Unknown]
  - Tremor [Not Recovered/Not Resolved]
  - Chest pain [Recovered/Resolved]
  - Dyspnoea [Unknown]
  - Chest discomfort [Unknown]
  - Dizziness [Unknown]
  - Limb discomfort [Unknown]
  - Anxiety [Unknown]
  - Anger [Unknown]
  - Injection site pain [Unknown]
  - Injection site erythema [Unknown]
  - Device dislocation [Unknown]
  - Muscle spasms [Unknown]
  - Hormone level abnormal [Unknown]

NARRATIVE: CASE EVENT DATE: 20230101
